FAERS Safety Report 21738038 (Version 1)
Quarter: 2022Q4

REPORT INFORMATION
  Report Type: Spontaneous
  Country: US (occurrence: US)
  Receive Date: 20221216
  Receipt Date: 20221216
  Transmission Date: 20230113
  Serious: No
  Sender: FDA-Public Use
  Company Number: US-ENDO PHARMACEUTICALS INC-2022-005356

PATIENT
  Sex: Male

DRUGS (1)
  1. XIAFLEX [Suspect]
     Active Substance: COLLAGENASE CLOSTRIDIUM HISTOLYTICUM
     Indication: Peyronie^s disease
     Dosage: 0.58 MG, UNKNOWN (INTO PENILE PLAQUE UPTO 2 TIMES, 1-3 DAYS APART AT APPROXIMATELY 6 WEEK INTERVALS)
     Route: 065

REACTIONS (1)
  - Drug ineffective [Not Recovered/Not Resolved]
